FAERS Safety Report 15397318 (Version 1)
Quarter: 2018Q3

REPORT INFORMATION
  Report Type: Spontaneous
  Country: US (occurrence: US)
  Receive Date: 20180913
  Receipt Date: 20180913
  Transmission Date: 20181010
  Serious: No
  Sender: FDA-Public Use
  Company Number: None

PATIENT
  Sex: Female

DRUGS (7)
  1. FASLODEX, FISH OIL [Concomitant]
  2. VITAMIN D [Concomitant]
     Active Substance: CHOLECALCIFEROL
  3. BIOTIN, ATARAX [Concomitant]
  4. VITAMIN C [Concomitant]
     Active Substance: ASCORBIC ACID
  5. IBRANCE [Suspect]
     Active Substance: PALBOCICLIB
     Indication: NEOPLASM MALIGNANT
     Dosage: ?          OTHER FREQUENCY:DAILY FOR 21 DAYS ;?
     Route: 048
     Dates: start: 20170228
  6. PROBIOTIC [Concomitant]
     Active Substance: PROBIOTICS NOS
  7. CALCIUM GLUC [Concomitant]

REACTIONS (1)
  - Oral neoplasm [None]
